FAERS Safety Report 14364262 (Version 8)
Quarter: 2018Q3

REPORT INFORMATION
  Report Type: Report from Study
  Country: PL (occurrence: PL)
  Receive Date: 20180108
  Receipt Date: 20180705
  Transmission Date: 20181010
  Serious: Yes (Hospitalization)
  Sender: FDA-Public Use
  Company Number: PHHO2017PL016763

PATIENT
  Age: 66 Year
  Sex: Female
  Weight: 67 kg

DRUGS (15)
  1. LBH589 [Suspect]
     Active Substance: PANOBINOSTAT
     Indication: PLASMA CELL MYELOMA
     Dosage: 20 MG, TIW
     Route: 048
     Dates: start: 20170926
  2. BORTEZOMIB. [Suspect]
     Active Substance: BORTEZOMIB
     Dosage: 1 MG/M2, BIW
     Route: 058
     Dates: start: 20171212
  3. OMEPRAZOLE. [Concomitant]
     Active Substance: OMEPRAZOLE
     Indication: PROPHYLAXIS AGAINST GASTROINTESTINAL ULCER
     Dosage: 20 MG, QD
     Route: 048
     Dates: start: 20170929
  4. LBH589 [Suspect]
     Active Substance: PANOBINOSTAT
     Dosage: 20 MG, TIW
     Route: 048
     Dates: start: 20171212
  5. KALIPOZ [Concomitant]
     Active Substance: POTASSIUM CHLORIDE
     Indication: PROPHYLAXIS
     Dosage: 391 MG, TID
     Route: 048
     Dates: start: 20171010
  6. TORECAN [Concomitant]
     Active Substance: THIETHYLPERAZINE MALATE
     Indication: PROPHYLAXIS OF NAUSEA AND VOMITING
     Dosage: 7 MG, OT
     Route: 048
     Dates: start: 20171122
  7. HEVIRAN [Concomitant]
     Active Substance: ACYCLOVIR
     Indication: PROPHYLAXIS
     Dosage: 400 MG, BID
     Route: 048
     Dates: start: 20170913
  8. CALPEROS [Concomitant]
     Active Substance: CALCIUM CARBONATE
     Indication: PROPHYLAXIS
     Dosage: 1000 MG, BID
     Route: 048
     Dates: start: 20171017
  9. DEXAMETHASONE. [Suspect]
     Active Substance: DEXAMETHASONE
     Indication: PLASMA CELL MYELOMA
     Dosage: 20 MG, OT
     Route: 048
     Dates: start: 20170926
  10. TRAMAL [Concomitant]
     Active Substance: TRAMADOL
     Indication: PAIN MANAGEMENT
     Dosage: 50 MG, TID
     Route: 048
     Dates: start: 20171024
  11. VIGANTOLETTEN [Concomitant]
     Active Substance: CHOLECALCIFEROL
     Indication: PROPHYLAXIS
     Dosage: 2000 IU, QD
     Route: 048
     Dates: start: 20171017
  12. DEXAMETHASONE. [Suspect]
     Active Substance: DEXAMETHASONE
     Dosage: 20 MG, OT
     Route: 048
     Dates: start: 20171212
  13. BISOCARD [Concomitant]
     Active Substance: BISOPROLOL
     Indication: HYPERTENSION
     Dosage: 3 MG, QD
     Route: 048
     Dates: start: 2011
  14. LOPERAMID [Concomitant]
     Active Substance: LOPERAMIDE
     Indication: PROPHYLAXIS AGAINST DIARRHOEA
     Dosage: 2 MG, OT
     Route: 048
     Dates: start: 20171122
  15. BORTEZOMIB. [Suspect]
     Active Substance: BORTEZOMIB
     Indication: PLASMA CELL MYELOMA
     Dosage: 1 MG/M2, BIW
     Route: 058
     Dates: start: 20170926

REACTIONS (2)
  - Pneumonia [Recovered/Resolved]
  - Respiratory tract infection [Recovered/Resolved]

NARRATIVE: CASE EVENT DATE: 20171204
